FAERS Safety Report 25021800 (Version 1)
Quarter: 2025Q1

REPORT INFORMATION
  Report Type: Spontaneous
  Country: US (occurrence: US)
  Receive Date: 20250228
  Receipt Date: 20250228
  Transmission Date: 20250409
  Serious: Yes (Other)
  Sender: BRISTOL-MYERS SQUIBB COMPANY
  Company Number: US-BRISTOL-MYERS SQUIBB COMPANY-2025-026809

PATIENT
  Age: 68 Year
  Sex: Female

DRUGS (1)
  1. IDECABTAGENE VICLEUCEL [Suspect]
     Active Substance: IDECABTAGENE VICLEUCEL
     Indication: Plasma cell myeloma
     Route: 042

REACTIONS (3)
  - Cytokine release syndrome [Unknown]
  - Progressive multifocal leukoencephalopathy [Recovering/Resolving]
  - Immune reconstitution inflammatory syndrome [Recovering/Resolving]
